FAERS Safety Report 21014671 (Version 5)
Quarter: 2022Q4

REPORT INFORMATION
  Report Type: Report from Study
  Country: US (occurrence: US)
  Receive Date: 20220628
  Receipt Date: 20221124
  Transmission Date: 20230113
  Serious: Yes (Hospitalization, Other)
  Sender: FDA-Public Use
  Company Number: US-ACADIA PHARMACEUTICALS INC.-ACA-2022-PIM-001955

PATIENT
  Age: 79 Year
  Sex: Male

DRUGS (29)
  1. NUPLAZID [Suspect]
     Active Substance: PIMAVANSERIN TARTRATE
     Indication: Parkinson^s disease psychosis
     Dosage: 34 MILLIGRAM, QD
     Route: 048
     Dates: start: 20200825
  2. MEMANTINE [Suspect]
     Active Substance: MEMANTINE
     Dosage: UNK
     Dates: start: 202109, end: 202206
  3. AMANTADINE [Concomitant]
     Active Substance: AMANTADINE
     Dosage: 100 MILLIGRAM, BID
  4. ASPIRIN [Concomitant]
     Active Substance: ASPIRIN
     Dosage: 81 MILLIGRAM, QD
     Route: 048
  5. CARBIDOPA\LEVODOPA [Concomitant]
     Active Substance: CARBIDOPA\LEVODOPA
     Dosage: 25-100 MG, 1.5 TABLETS 3 TIMES DAILY
     Route: 048
  6. CLOPIDOGREL [Concomitant]
     Active Substance: CLOPIDOGREL BISULFATE
     Dosage: 75 MILLIGRAM, QD
     Route: 048
  7. DOCUSATE [Concomitant]
     Active Substance: DOCUSATE
     Dosage: 100 MILLIGRAM, AT SLEEP, QD
     Route: 048
  8. PEPCID [Concomitant]
     Active Substance: FAMOTIDINE
     Dosage: 1 TABLET PRN
  9. FINASTERIDE [Concomitant]
     Active Substance: FINASTERIDE
     Dosage: 5 MILLIGRAM, QD
     Route: 048
  10. LEVOTHYROXINE [Concomitant]
     Active Substance: LEVOTHYROXINE
     Dosage: 100 MCG QD
     Route: 048
  11. LIVALO [Concomitant]
     Active Substance: PITAVASTATIN CALCIUM
     Dosage: 4 MILLIGRAM, AT SLEEP, QD
     Route: 048
  12. LUMIGAN [Concomitant]
     Active Substance: BIMATOPROST
     Dosage: 0.01%, 1 DROP INT EACH EYE AT BEDTIME
     Route: 047
  13. MYRBETRIQ [Concomitant]
     Active Substance: MIRABEGRON
     Dosage: 25 MILLIGRAM, TAKE 1 TABLET, QD
     Route: 048
  14. NITROGLYCERIN [Concomitant]
     Active Substance: NITROGLYCERIN
     Dosage: 0.4 MG AS NEEDED
     Route: 060
  15. ONDANSETRON [Concomitant]
     Active Substance: ONDANSETRON
     Dosage: 4 MILLIGRAM. PRN
  16. PANTOPRAZOLE [Concomitant]
     Active Substance: PANTOPRAZOLE
     Dosage: 40 MILLIGRAM, EVERY OTHER DAY
     Route: 048
  17. PANTOPRAZOLE [Concomitant]
     Active Substance: PANTOPRAZOLE
     Dosage: 40 MILLIGRAM, DAILY
     Route: 048
  18. RIVASTIGMINE [Concomitant]
     Active Substance: RIVASTIGMINE
     Dosage: 9.5 MG/24 HR DAILY
     Route: 062
  19. RIVASTIGMINE [Concomitant]
     Active Substance: RIVASTIGMINE
     Dosage: 4.6 MG/24 HOUR, 1 PATCH , DAILY
     Route: 062
  20. SELENIUM [Concomitant]
     Active Substance: SELENIUM
     Dosage: 200 MILLIGRAM, AT SLEEP, QD
     Route: 048
  21. SERTRALINE [Concomitant]
     Active Substance: SERTRALINE HYDROCHLORIDE
     Dosage: 50 MILLIGRAM, QD
     Route: 048
  22. SILDENAFIL [Concomitant]
     Active Substance: SILDENAFIL
     Dosage: 100 MILLIGRAM, 1 TABLET, PRN
     Route: 048
  23. TAMSULOSIN [Concomitant]
     Active Substance: TAMSULOSIN
     Dosage: 0.4 MG, QD
     Route: 048
  24. TIMOLOL [Concomitant]
     Active Substance: TIMOLOL
     Dosage: 0.5%, 1 DROP RIGHT EYE, AT SLEEP, QD
     Route: 047
  25. COENZYME Q10 [Concomitant]
     Active Substance: DIETARY SUPPLEMENT\UBIDECARENONE
     Dosage: 200 MILLIGRAM, AT SLEEP, QD
     Route: 048
  26. FAMOTIDINE [Concomitant]
     Active Substance: FAMOTIDINE
  27. TOLTERODINE [Concomitant]
     Active Substance: TOLTERODINE
  28. FAMOTIDINE, CALCIUM CARBONATE AND MAGNESIUM HYDROXIDE [Concomitant]
     Active Substance: CALCIUM CARBONATE\FAMOTIDINE\MAGNESIUM HYDROXIDE
     Dosage: 10-800-165 MG, 1 TABLET AS NEEDED
     Route: 048
  29. BIMATOPROST [Concomitant]
     Active Substance: BIMATOPROST
     Dosage: 0.01% INSTILL 1 DROP INTO EACH EYE AT BEDTIME
     Route: 047

REACTIONS (7)
  - Loss of consciousness [Recovered/Resolved]
  - COVID-19 [Recovered/Resolved]
  - Feeling abnormal [Unknown]
  - Memory impairment [Unknown]
  - Parkinson^s disease [Unknown]
  - Hallucination [Unknown]
  - Hallucination, visual [Unknown]

NARRATIVE: CASE EVENT DATE: 20220601
